FAERS Safety Report 12428807 (Version 1)
Quarter: 2016Q2

REPORT INFORMATION
  Report Type: Spontaneous
  Country: ES (occurrence: ES)
  Receive Date: 20160602
  Receipt Date: 20160602
  Transmission Date: 20160815
  Serious: Yes (Other)
  Sender: FDA-Public Use
  Company Number: ES-IPSEN BIOPHARMACEUTICALS, INC.-2016-04636

PATIENT
  Age: 31 Year
  Sex: Male
  Weight: 40 kg

DRUGS (1)
  1. DYSPORT [Suspect]
     Active Substance: ABOBOTULINUMTOXINA
     Indication: MUSCLE SPASTICITY
     Dosage: 1500IU
     Route: 030
     Dates: start: 20160212, end: 20160212

REACTIONS (4)
  - Dysphagia [Recovered/Resolved]
  - Suffocation feeling [Unknown]
  - Oropharyngeal pain [Unknown]
  - Secretion discharge [Unknown]

NARRATIVE: CASE EVENT DATE: 201602
